FAERS Safety Report 24989179 (Version 2)
Quarter: 2025Q4

REPORT INFORMATION
  Report Type: Spontaneous
  Country: US (occurrence: US)
  Receive Date: 20250220
  Receipt Date: 20251016
  Transmission Date: 20260117
  Serious: Yes (Other)
  Sender: BRISTOL-MYERS SQUIBB COMPANY
  Company Number: US-BRISTOL-MYERS SQUIBB COMPANY-2025-026133

PATIENT
  Age: 68 Year
  Sex: Male

DRUGS (2)
  1. LENALIDOMIDE [Suspect]
     Active Substance: LENALIDOMIDE
     Indication: Plasma cell myeloma
  2. LENALIDOMIDE [Suspect]
     Active Substance: LENALIDOMIDE
     Indication: Stem cell donor
     Dosage: TAKE 1 CAPSULE (15 MG TOTAL) BY MOUTH DAILY FOR 14 DAYS, THEN HOLD FOR 7 DAYS. REPEAT EVERY 21 DAYS.

REACTIONS (3)
  - Off label use [Unknown]
  - Cancer cells present [Not Recovered/Not Resolved]
  - Back pain [Recovering/Resolving]
